FAERS Safety Report 5317532-4 (Version None)
Quarter: 2007Q2

REPORT INFORMATION
  Report Type: 
  Country: None (occurrence: None)
  Receive Date: 20070507
  Receipt Date: 20070503
  Transmission Date: 20071010
  Serious: Yes (Life-Threatening, Other)
  Sender: FDA-Public Use
  Company Number: PHNR2007AU01056

PATIENT
  Age: 37 Year
  Sex: Female

DRUGS (1)
  1. ELIDEL [Suspect]
     Route: 061

REACTIONS (8)
  - BIOPSY BREAST ABNORMAL [None]
  - BREAST CANCER [None]
  - BREAST MASS [None]
  - BREAST MICROCALCIFICATION [None]
  - FIBROADENOMA OF BREAST [None]
  - MAMMOGRAM ABNORMAL [None]
  - MASTECTOMY [None]
  - ULTRASOUND BREAST ABNORMAL [None]
